FAERS Safety Report 25495020 (Version 1)
Quarter: 2025Q2

REPORT INFORMATION
  Report Type: Spontaneous
  Country: US (occurrence: US)
  Receive Date: 20250630
  Receipt Date: 20250630
  Transmission Date: 20250716
  Serious: Yes (Life-Threatening, Other)
  Sender: PFIZER
  Company Number: US-PFIZER INC-PV202500076334

PATIENT
  Age: 30 Year
  Sex: Male

DRUGS (11)
  1. CYTARABINE [Suspect]
     Active Substance: CYTARABINE
     Indication: Myeloid leukaemia
     Dosage: 100 MG/M2, 1X/DAY
  2. IDARUBICIN HYDROCHLORIDE [Suspect]
     Active Substance: IDARUBICIN HYDROCHLORIDE
     Indication: Myeloid leukaemia
     Dosage: 12 MG/M2, 1X/DAY, FIRST 3 DAYS
  3. PROCHLORPERAZINE EDISYLATE [Concomitant]
     Active Substance: PROCHLORPERAZINE EDISYLATE
     Indication: Vomiting
  4. ALLOPURINOL [Concomitant]
     Active Substance: ALLOPURINOL
     Indication: Leukaemia
  5. CEFTAZIDIME [Concomitant]
     Active Substance: CEFTAZIDIME
     Indication: Sepsis
  6. DECADRON [Concomitant]
     Active Substance: DEXAMETHASONE
     Indication: Vomiting
  7. HYDROXYUREA [Concomitant]
     Active Substance: HYDROXYUREA
     Indication: Leukaemia
  8. METRONIDAZOLE [Concomitant]
     Active Substance: METRONIDAZOLE
     Indication: Sepsis
  9. SARGRAMOSTIM [Concomitant]
     Active Substance: SARGRAMOSTIM
  10. TOBRAMYCIN [Concomitant]
     Active Substance: TOBRAMYCIN
     Indication: Sepsis
  11. VANCOMYCIN [Concomitant]
     Active Substance: VANCOMYCIN
     Indication: Sepsis

REACTIONS (2)
  - Neutropenia [Unknown]
  - Hidradenitis [Unknown]
